FAERS Safety Report 6504080-9 (Version None)
Quarter: 2009Q4

REPORT INFORMATION
  Report Type: 
  Country: None (occurrence: None)
  Receive Date: 20091217
  Receipt Date: 20091206
  Transmission Date: 20100525
  Serious: Yes (Other)
  Sender: FDA-Public Use
  Company Number: AE-JNJFOC-20091202370

PATIENT
  Sex: Male

DRUGS (3)
  1. REMICADE [Suspect]
     Route: 042
  2. REMICADE [Suspect]
     Indication: COLITIS ULCERATIVE
     Route: 042
  3. XYZAL [Concomitant]
     Indication: HYPERSENSITIVITY

REACTIONS (6)
  - ARTHRALGIA [None]
  - CHEST DISCOMFORT [None]
  - INFUSION RELATED REACTION [None]
  - MUSCULOSKELETAL PAIN [None]
  - RASH [None]
  - URTICARIA [None]
